FAERS Safety Report 15607078 (Version 1)
Quarter: 2018Q4

REPORT INFORMATION
  Report Type: Spontaneous
  Country: US (occurrence: US)
  Receive Date: 20181112
  Receipt Date: 20181112
  Transmission Date: 20190205
  Serious: No
  Sender: FDA-Public Use
  Company Number: US-SHIRE-US201844070

PATIENT
  Sex: Female

DRUGS (1)
  1. XIIDRA [Suspect]
     Active Substance: LIFITEGRAST
     Indication: PRODUCT USED FOR UNKNOWN INDICATION
     Route: 047

REACTIONS (6)
  - Instillation site discomfort [Unknown]
  - Instillation site discharge [Unknown]
  - Vision blurred [Unknown]
  - Instillation site irritation [Unknown]
  - Instillation site lacrimation [Unknown]
  - Instillation site reaction [Unknown]
